FAERS Safety Report 5081059-8 (Version None)
Quarter: 2006Q3

REPORT INFORMATION
  Report Type: 
  Country: None (occurrence: None)
  Receive Date: 20060816
  Receipt Date: 20060403
  Transmission Date: 20061208
  Serious: Yes (Life-Threatening)
  Sender: FDA-Public Use
  Company Number: DE-BAYER-200610459BVD

PATIENT
  Age: 59 Year
  Sex: Male
  Weight: 110 kg

DRUGS (9)
  1. AVELOX [Suspect]
     Indication: BRONCHITIS
     Route: 042
     Dates: start: 20060331, end: 20060401
  2. AMARYL [Concomitant]
  3. PANTOZOL [Concomitant]
  4. ARELIX [Concomitant]
  5. DELIX [Concomitant]
  6. NOVALGIN [Concomitant]
  7. FURORESE [Concomitant]
  8. RAMIPRIL [Concomitant]
  9. LANTUS [Concomitant]

REACTIONS (22)
  - ANAEMIA [None]
  - AORTIC VALVE INCOMPETENCE [None]
  - ASCITES [None]
  - BLADDER CANCER [None]
  - BUNDLE BRANCH BLOCK RIGHT [None]
  - DIABETES MELLITUS NON-INSULIN-DEPENDENT [None]
  - DIABETIC NEUROPATHY [None]
  - HEPATIC FAILURE [None]
  - INFECTION [None]
  - LIVER DISORDER [None]
  - METASTASES TO BONE [None]
  - METASTASES TO LYMPH NODES [None]
  - MITRAL VALVE INCOMPETENCE [None]
  - OSTEOMYELITIS [None]
  - PLEURAL EFFUSION [None]
  - PULMONARY EMBOLISM [None]
  - PULSE ABSENT [None]
  - RECTAL ULCER [None]
  - RENAL FAILURE [None]
  - SUPRAVENTRICULAR TACHYCARDIA [None]
  - TRICUSPID VALVE INCOMPETENCE [None]
  - VENTRICULAR DYSFUNCTION [None]
